FAERS Safety Report 5384326-3 (Version None)
Quarter: 2007Q3

REPORT INFORMATION
  Report Type: 
  Country: None (occurrence: None)
  Receive Date: 20070711
  Receipt Date: 20070710
  Transmission Date: 20080115
  Serious: Yes (Hospitalization)
  Sender: FDA-Public Use
  Company Number: US-BRISTOL-MYERS SQUIBB COMPANY-13840210

PATIENT
  Age: 35 Year
  Sex: Female
  Weight: 84 kg

DRUGS (7)
  1. CETUXIMAB [Suspect]
     Indication: BREAST CANCER METASTATIC
     Route: 042
     Dates: start: 20070626
  2. CARBOPLATIN [Suspect]
     Indication: BREAST CANCER METASTATIC
     Route: 042
     Dates: start: 20070626
  3. DIPHENHYDRAMINE HCL [Concomitant]
     Indication: EYE PRURITUS
  4. CIPROFLOXACIN [Concomitant]
     Indication: EYE INFECTION
  5. ZOFRAN [Concomitant]
     Indication: NAUSEA
  6. OXYCONTIN [Concomitant]
     Indication: PAIN
  7. OXYCODONE HCL [Concomitant]
     Indication: PAIN

REACTIONS (9)
  - CONSTIPATION [None]
  - DEHYDRATION [None]
  - EYE IRRITATION [None]
  - NAUSEA [None]
  - PHARYNGOLARYNGEAL PAIN [None]
  - PLEURAL EFFUSION [None]
  - PULMONARY EMBOLISM [None]
  - SINUS TACHYCARDIA [None]
  - VOMITING [None]
